FAERS Safety Report 19030530 (Version 1)
Quarter: 2021Q1

REPORT INFORMATION
  Report Type: Spontaneous
  Country: US (occurrence: US)
  Receive Date: 20210318
  Receipt Date: 20210318
  Transmission Date: 20210420
  Serious: No
  Sender: FDA-Public Use
  Company Number: None

PATIENT
  Age: 45 Year
  Sex: Male
  Weight: 92.7 kg

DRUGS (4)
  1. TRINTELLIX [Suspect]
     Active Substance: VORTIOXETINE HYDROBROMIDE
     Indication: DEPRESSION
     Route: 048
     Dates: start: 20140318, end: 20210318
  2. XANAX [Concomitant]
     Active Substance: ALPRAZOLAM
  3. ZYRTEC [Concomitant]
     Active Substance: CETIRIZINE HYDROCHLORIDE
  4. KLOPON [Concomitant]

REACTIONS (2)
  - Self-injurious ideation [None]
  - Withdrawal syndrome [None]

NARRATIVE: CASE EVENT DATE: 20210302
